FAERS Safety Report 8383635-3 (Version None)
Quarter: 2012Q2

REPORT INFORMATION
  Report Type: 
  Country: None (occurrence: None)
  Receive Date: 20120524
  Receipt Date: 20120519
  Transmission Date: 20120825
  Serious: Yes (Life-Threatening, Other)
  Sender: FDA-Public Use
  Company Number: ES-PFIZER INC-2012123120

PATIENT
  Age: 33 Year
  Sex: Male
  Weight: 80 kg

DRUGS (5)
  1. ETUMINA [Concomitant]
     Dosage: 1 TABLET
  2. RISPERDAL [Concomitant]
     Dosage: 6 CC/DAY
  3. METHADONE [Concomitant]
  4. CONCERTA [Concomitant]
     Dosage: 36 MG, UNK
  5. ALPRAZOLAM [Suspect]
     Dosage: 3 MG, UNK
     Dates: start: 20120301

REACTIONS (3)
  - DRUG INEFFECTIVE [None]
  - DEPRESSION [None]
  - PHOBIA [None]
